FAERS Safety Report 24569343 (Version 2)
Quarter: 2024Q4

REPORT INFORMATION
  Report Type: Spontaneous
  Country: ES (occurrence: ES)
  Receive Date: 20241031
  Receipt Date: 20241227
  Transmission Date: 20250114
  Serious: Yes (Hospitalization)
  Sender: PFIZER
  Company Number: ES-ROCHE-3358065

PATIENT
  Age: 46 Year
  Sex: Female
  Weight: 54 kg

DRUGS (6)
  1. BEVACIZUMAB [Suspect]
     Active Substance: BEVACIZUMAB
     Indication: Ovarian epithelial cancer
     Dosage: 1260 MG, EVERY 3 WEEKS
     Route: 042
     Dates: start: 20220113
  2. BEVACIZUMAB [Suspect]
     Active Substance: BEVACIZUMAB
     Dosage: 825 MG
     Route: 042
     Dates: start: 20230518
  3. ATEZOLIZUMAB [Suspect]
     Active Substance: ATEZOLIZUMAB
     Indication: Ovarian epithelial cancer
     Dosage: 1200 MG, EVERY 3 WEEKS
     Route: 042
     Dates: start: 20220113, end: 20230518
  4. LANSOPRAZOLE [Concomitant]
     Active Substance: LANSOPRAZOLE
     Indication: Gastritis
     Dosage: 30 MG, DAILY
     Route: 048
  5. OMEPRAZOLE [Concomitant]
     Active Substance: OMEPRAZOLE
     Indication: Gastritis
     Dosage: 20 MG, DAILY
     Route: 048
     Dates: start: 20220131
  6. CIDINE [CINITAPRIDE TARTRATE] [Concomitant]
     Indication: Gastroenteritis
     Dosage: 1 MG, 2X/DAY (PILL)
     Route: 048
     Dates: start: 20220423

REACTIONS (3)
  - Ischaemic stroke [Recovered/Resolved]
  - Off label use [Unknown]
  - Product use issue [Unknown]

NARRATIVE: CASE EVENT DATE: 20230524
